FAERS Safety Report 4288406-5 (Version None)
Quarter: 2004Q1

REPORT INFORMATION
  Report Type: 
  Country: None (occurrence: None)
  Receive Date: 20040209
  Receipt Date: 20030924
  Transmission Date: 20041129
  Serious: No
  Sender: FDA-Public Use
  Company Number: US-GLAXOSMITHKLINE-A0427715A

PATIENT
  Age: 33 Year
  Sex: Female

DRUGS (3)
  1. PAXIL [Suspect]
     Indication: DEPRESSION
     Route: 048
  2. XANAX [Suspect]
     Indication: DEPRESSION
     Route: 065
  3. BEER [Suspect]
     Dosage: 2U UNKNOWN
     Route: 048
     Dates: start: 20030901

REACTIONS (2)
  - POISONING [None]
  - ROAD TRAFFIC ACCIDENT [None]
